FAERS Safety Report 9883246 (Version 3)
Quarter: 2014Q1

REPORT INFORMATION
  Report Type: Report from Study
  Country: KR (occurrence: KR)
  Receive Date: 20140209
  Receipt Date: 20140214
  Transmission Date: 20141002
  Serious: Yes (Hospitalization, Other)
  Sender: FDA-Public Use
  Company Number: KR-B.I. PHARMACEUTICALS,INC./RIDGEFIELD-2013-BI-43957BI

PATIENT
  Age: 67 Year
  Sex: Male
  Weight: 52.7 kg

DRUGS (61)
  1. VOLASERTIB [Suspect]
     Indication: ACUTE MYELOID LEUKAEMIA
     Dosage: FORMULATION: INJECTION
     Route: 042
     Dates: start: 20131213
  2. CYTARABINE [Suspect]
     Indication: ACUTE MYELOID LEUKAEMIA
     Dosage: FORMULATION: INJECTION,DOSE PER APPLICATION: 20 MG/ML, DAILY DOSE: 40 MG
     Route: 058
     Dates: start: 20131213
  3. TRAMOL TAB [Suspect]
     Indication: PYREXIA
     Dosage: 650 MG
     Route: 048
     Dates: start: 20131217
  4. TRAMOL TAB [Suspect]
     Indication: MYALGIA
     Dosage: 1950 MG
     Route: 048
     Dates: start: 20131207
  5. TRAMOL TAB [Suspect]
     Indication: PAIN
  6. DULCOLAX [Suspect]
     Indication: CONSTIPATION
     Dosage: 10 MG
     Dates: start: 20140106, end: 20140106
  7. DICODE SR [Suspect]
     Indication: PAIN PROPHYLAXIS
     Dosage: 120 MG
     Route: 048
     Dates: start: 20140106
  8. LASIX [Suspect]
     Indication: DYSURIA
     Dosage: 40 MG
     Route: 042
     Dates: start: 20140109, end: 20140111
  9. LASIX [Suspect]
     Indication: OEDEMA
  10. URSA TAB [Suspect]
     Indication: PROPHYLAXIS
     Dosage: 600 MG
     Route: 048
     Dates: start: 20131219, end: 20140119
  11. URSA TAB [Suspect]
     Indication: LIVER FUNCTION TEST ABNORMAL
  12. DUPHALAC-EASY SYR [Suspect]
     Indication: CONSTIPATION
     Dosage: 15 ML
     Route: 048
     Dates: start: 20140103, end: 20140130
  13. MAGNESIUM SULFATE [Concomitant]
     Indication: PROPHYLAXIS
     Dosage: 40 ML
     Route: 042
     Dates: start: 20131208, end: 20140131
  14. MAGNESIUM SULFATE [Concomitant]
     Indication: HYPOMAGNESAEMIA
  15. TRIDOL [Concomitant]
     Indication: PAIN
     Dosage: 150 MG
     Route: 042
     Dates: start: 20131211
  16. TRIDOL [Concomitant]
     Indication: HEADACHE
  17. TRIDOL [Concomitant]
     Indication: PAIN
  18. K-CONTN [Concomitant]
     Indication: HYPOKALAEMIA
     Dosage: 3600 MG
     Route: 048
     Dates: start: 20131213
  19. K-CONTN TAB [Concomitant]
     Dosage: 4800 MG
     Route: 048
     Dates: start: 20131219, end: 20140115
  20. FUNGIZONE [Concomitant]
     Indication: PNEUMONIA FUNGAL
     Dosage: 40 MG
     Route: 042
     Dates: start: 20131216
  21. METHYSOL [Concomitant]
     Indication: PROPHYLAXIS
     Dosage: 325 MG
     Route: 042
     Dates: start: 20131216
  22. VANCOMYCIN [Concomitant]
     Indication: PNEUMONIA FUNGAL
     Dosage: 2000 MG
     Route: 042
     Dates: start: 20131219
  23. VANCOMYCIN [Concomitant]
     Indication: PYREXIA
     Dosage: 2000 MG
     Route: 042
     Dates: start: 20131207, end: 20140120
  24. VANCOMYCIN [Concomitant]
     Dosage: 2000 MG
     Route: 042
     Dates: start: 20140201
  25. TAZOCIN [Concomitant]
     Indication: PNEUMONIA FUNGAL
     Dosage: 18 G
     Route: 042
     Dates: start: 20131219
  26. PENIRAMIN [Concomitant]
     Indication: PROPHYLAXIS
     Dosage: 6 MG
     Route: 042
     Dates: start: 20131216
  27. STILNOX [Concomitant]
     Indication: INSOMNIA
     Dosage: 5 MG
     Route: 048
     Dates: start: 20131222
  28. MGO CAP [Concomitant]
     Indication: PROPHYLAXIS
     Dosage: 1500 MG
     Route: 048
     Dates: start: 20131221
  29. MGO CAP [Concomitant]
     Indication: CONSTIPATION PROPHYLAXIS
     Dosage: 1500 MG
     Route: 048
     Dates: start: 20140101, end: 20140130
  30. MGO CAP [Concomitant]
     Indication: CONSTIPATION
  31. SMOF KABVEN INJ [Concomitant]
     Indication: DECREASED APPETITE
     Dosage: 1000 ML
     Route: 042
     Dates: start: 20131224, end: 20140108
  32. SMOF KABVEN INJ [Concomitant]
     Dosage: DOSE: 1 L
     Route: 042
     Dates: start: 20140131, end: 20140201
  33. TAMIPOOL INJ [Concomitant]
     Indication: PROPHYLAXIS
     Dosage: 5 ML
     Route: 042
     Dates: start: 20131224, end: 20140108
  34. TAMIPOOL INJ [Concomitant]
     Dosage: FORMULATION: INJ; DOSE: 1 VIA
     Route: 042
     Dates: start: 20140131, end: 20140201
  35. CORTISOLU [Concomitant]
     Indication: PROPHYLAXIS
     Dosage: 100 MG
     Route: 042
     Dates: start: 20140107, end: 20140107
  36. DENOGAN [Concomitant]
     Indication: PAIN PROPHYLAXIS
     Dosage: 1 G
     Route: 042
     Dates: start: 20131206
  37. DENOGAN [Concomitant]
     Indication: PROPHYLAXIS
     Dosage: 1 G
     Route: 042
     Dates: start: 20140107
  38. FLASINYL [Concomitant]
     Indication: PNEUMONIA FUNGAL
     Dosage: 1.5 G
     Route: 048
     Dates: start: 20131228, end: 20140104
  39. FLASINYL [Concomitant]
     Indication: INFECTION
     Dosage: 1500 MG
     Route: 048
     Dates: start: 20140131
  40. GANATON [Concomitant]
     Indication: PROPHYLAXIS
     Dosage: 150 MG
     Route: 048
     Dates: start: 20140103, end: 20140114
  41. HYDROZOL [Concomitant]
     Indication: PROPHYLAXIS
     Dosage: 20 G
     Dates: start: 20131228, end: 20140113
  42. JEIL PETHIDINE [Concomitant]
     Indication: PAIN PROPHYLAXIS
     Dosage: 50 MG
     Route: 042
     Dates: start: 20131226
  43. MACPERAN [Concomitant]
     Indication: PROPHYLAXIS OF NAUSEA AND VOMITING
     Dosage: 60 MG
     Route: 042
     Dates: start: 20131225
  44. MACPERAN [Concomitant]
     Indication: PROPHYLAXIS OF NAUSEA AND VOMITING
  45. MEGACE [Concomitant]
     Indication: DECREASED APPETITE
     Dosage: 10 ML
     Route: 048
     Dates: start: 20131230
  46. MEPEM [Concomitant]
     Indication: PNEUMONIA FUNGAL
     Dosage: 3 G
     Route: 042
     Dates: start: 20140118, end: 20140120
  47. MUCOPECT [Concomitant]
     Indication: PNEUMONIA FUNGAL
     Dosage: 90 MG
     Route: 048
     Dates: start: 20131230
  48. NAK 200 [Concomitant]
     Indication: HYPOKALAEMIA
     Dosage: 200 ML
     Route: 042
     Dates: start: 20131208, end: 20140113
  49. NAK 200 [Concomitant]
     Dosage: 200 ML
     Route: 042
     Dates: start: 20140131, end: 20140131
  50. PREPENEM [Concomitant]
     Indication: PNEUMONIA FUNGAL
     Dosage: 2 G
     Route: 042
     Dates: start: 20131226, end: 20140115
  51. PREPENEM [Concomitant]
     Indication: INFECTION
     Dosage: 2500 MG
     Route: 042
     Dates: start: 20140201, end: 20140201
  52. PREPENEM [Concomitant]
     Dosage: 2000 MG
     Route: 042
     Dates: start: 20140202
  53. SODIUM BICARBONATE [Concomitant]
     Indication: ACIDOSIS
     Dosage: FORMULATION: GARGLE; DOSE: 1 L
     Route: 048
     Dates: start: 20131207, end: 20140124
  54. SODIUM BICARBONATE [Concomitant]
     Indication: PROPHYLAXIS
     Dosage: FORMULATION: GARGLE; DOSE: 1 L
     Route: 048
     Dates: start: 20140131, end: 20140131
  55. TAZIME [Concomitant]
     Indication: PNEUMONIA FUNGAL
     Dosage: 6000 MG
     Route: 042
     Dates: start: 20140121
  56. TERRAMYCIN [Concomitant]
     Indication: PROPHYLAXIS
     Dosage: 3.5 G
     Dates: start: 20131228, end: 20140113
  57. VFEND [Concomitant]
     Indication: PNEUMONIA FUNGAL
     Dosage: 1600 MG
     Route: 042
     Dates: start: 20140104, end: 20140121
  58. VFEND [Concomitant]
     Dosage: 400 MG
     Route: 048
     Dates: start: 20140129
  59. CEFAZOLIN [Concomitant]
     Indication: INFECTION
     Dosage: 6000 MG
     Route: 042
     Dates: start: 20140131, end: 20140131
  60. PHAZYME [Concomitant]
     Indication: DYSPEPSIA
     Dosage: 1 ANZ
     Route: 048
     Dates: start: 20140202, end: 20140202
  61. VITAMIN K1 [Concomitant]
     Indication: PROPHYLAXIS
     Dosage: 10 MG
     Route: 042
     Dates: start: 20140201, end: 20140201

REACTIONS (15)
  - Pneumonia [Recovered/Resolved]
  - Ileus [Recovered/Resolved]
  - Febrile neutropenia [Recovered/Resolved]
  - Vomiting [Recovered/Resolved]
  - Nausea [Recovered/Resolved]
  - Atrial fibrillation [Recovered/Resolved]
  - Weight increased [Recovered/Resolved]
  - Dysuria [Recovered/Resolved]
  - Arthralgia [Recovered/Resolved]
  - Somnolence [Recovered/Resolved]
  - Chills [Recovered/Resolved]
  - Epistaxis [Recovered/Resolved]
  - Prothrombin time prolonged [Recovered/Resolved]
  - Diarrhoea [Recovered/Resolved]
  - Abdominal pain [Recovered/Resolved]
